FAERS Safety Report 5694643-5 (Version None)
Quarter: 2008Q2

REPORT INFORMATION
  Report Type: 
  Country: None (occurrence: None)
  Receive Date: 20080404
  Receipt Date: 20080324
  Transmission Date: 20081010
  Serious: Yes (Congenital Anomaly)
  Sender: FDA-Public Use
  Company Number: A0681917A

PATIENT
  Sex: Female

DRUGS (4)
  1. PAXIL [Suspect]
     Dosage: 30MG PER DAY
     Dates: start: 19990101
  2. VITAMIN TAB [Concomitant]
     Indication: PREGNANCY
     Dates: start: 20010401, end: 20020401
  3. TYLENOL (CAPLET) [Concomitant]
  4. AMOXIL [Concomitant]
     Dates: start: 20011001

REACTIONS (4)
  - CARDIAC MURMUR [None]
  - DRUG EXPOSURE DURING PREGNANCY [None]
  - TACHYPNOEA [None]
  - VENTRICULAR SEPTAL DEFECT [None]
